FAERS Safety Report 8868767 (Version 1)
Quarter: 2012Q4

REPORT INFORMATION
  Report Type: 
  Country: US (occurrence: US)
  Receive Date: 20121026
  Receipt Date: 20121026
  Transmission Date: 20130627
  Serious: No
  Sender: FDA-Public Use
  Company Number: US-AMGEN-USASP2012047624

PATIENT
  Age: 67 Year
  Sex: Male
  Weight: 113.38 kg

DRUGS (16)
  1. ENBREL [Suspect]
     Indication: PRODUCT USED FOR UNKNOWN INDICATION
     Dosage: 50 mg, qwk
     Route: 058
  2. XALATAN [Concomitant]
     Dosage: 0.005 %, UNK
  3. COMBIGAN [Concomitant]
     Dosage: UNK
  4. RAMIPRIL [Concomitant]
     Dosage: 10 mg, UNK
  5. PREDNISONE [Concomitant]
     Dosage: 1 mg, UNK
  6. AZOPT [Concomitant]
     Dosage: 1 %, UNK
  7. NIASPAN [Concomitant]
     Dosage: 500 mg, UNK
  8. HYDROXYCHLOROQUINE [Concomitant]
     Dosage: 200 mg, UNK
  9. FOLIC ACID [Concomitant]
     Dosage: 1 mg, UNK
  10. METOPROLOL TARTRATE [Concomitant]
     Dosage: 25 mg, UNK
  11. ALOPURINOL [Concomitant]
     Dosage: 100 mg, UNK
  12. LATANOPROST [Concomitant]
     Dosage: 0.005 %, UNK
  13. SULFASALAZIN [Concomitant]
     Dosage: 500 mg, UNK
  14. ALEVE [Concomitant]
     Dosage: 220 mg, UNK
  15. ASPIRIN LOW [Concomitant]
     Dosage: 81 mg, UNK
  16. TIMOLOL [Concomitant]
     Dosage: 0.5 %, UNK

REACTIONS (2)
  - Contusion [Recovering/Resolving]
  - Platelet count decreased [Unknown]
